FAERS Safety Report 4762906-3 (Version None)
Quarter: 2005Q3

REPORT INFORMATION
  Report Type: 
  Country: None (occurrence: None)
  Receive Date: 20050907
  Receipt Date: 20050809
  Transmission Date: 20060218
  Serious: Yes (Other)
  Sender: FDA-Public Use
  Company Number: PHEH2005US08873

PATIENT
  Age: 74 Year
  Sex: Female
  Weight: 73 kg

DRUGS (2)
  1. ZOMETA [Suspect]
     Indication: METASTASES TO BONE
     Dosage: 4 MG IN 150ML NS OVER 20-45 MIN EVERY 3WEEKS
     Route: 042
     Dates: start: 20040706, end: 20050609
  2. ARIMIDEX [Concomitant]
     Indication: BREAST CANCER
     Dosage: 1 MG, QD
     Route: 048
     Dates: start: 20050128

REACTIONS (8)
  - BACK PAIN [None]
  - BONE OPERATION [None]
  - CYST [None]
  - CYST REMOVAL [None]
  - DENTAL CARIES [None]
  - GINGIVAL CYST [None]
  - IMPAIRED HEALING [None]
  - TOOTH EXTRACTION [None]
